FAERS Safety Report 10994432 (Version 2)
Quarter: 2016Q1

REPORT INFORMATION
  Report Type: Spontaneous
  Country: CZ (occurrence: CZ)
  Receive Date: 20150407
  Receipt Date: 20160311
  Transmission Date: 20160525
  Serious: Yes (Life-Threatening, Hospitalization, Other)
  Sender: FDA-Public Use
  Company Number: US-ASTRAZENECA-2015SE31292

PATIENT
  Age: 180 Day
  Sex: Female
  Weight: 6.1 kg

DRUGS (7)
  1. PAMYCON NA PRIPRAVU [Concomitant]
     Indication: OTITIS EXTERNA
     Dosage: EVERY DAY
     Route: 048
  2. SYNAGIS [Suspect]
     Active Substance: PALIVIZUMAB
     Indication: PROPHYLAXIS
     Route: 030
     Dates: start: 20141126, end: 20150312
  3. PAMYCON NA PRIPRAVU [Concomitant]
     Indication: PROPHYLAXIS
     Dosage: EVERY DAY
     Route: 048
  4. PAMYCON NA PRIPRAVU [Concomitant]
     Indication: OTITIS EXTERNA
     Dosage: EVERY DAY
     Route: 001
  5. PAMYCON NA PRIPRAVU [Concomitant]
     Indication: PROPHYLAXIS
     Dosage: EVERY DAY
     Route: 001
  6. VIGANTOL [Concomitant]
     Indication: RICKETS
     Dosage: DAILY
  7. VIGANTOL [Concomitant]
     Indication: PROPHYLAXIS
     Dosage: DAILY

REACTIONS (3)
  - Apnoea [Recovered/Resolved]
  - Hypotonia [Recovered/Resolved]
  - Cyanosis [Recovered/Resolved]

NARRATIVE: CASE EVENT DATE: 20150312
